FAERS Safety Report 25670253 (Version 1)
Quarter: 2025Q3

REPORT INFORMATION
  Report Type: Spontaneous
  Country: US (occurrence: None)
  Receive Date: 20250811
  Receipt Date: 20250811
  Transmission Date: 20251020
  Serious: Yes (Hospitalization)
  Sender: FDA-CTU
  Company Number: None

PATIENT
  Age: 46 Year
  Sex: Male

DRUGS (1)
  1. SOFOSBUVIR\VELPATASVIR [Suspect]
     Active Substance: SOFOSBUVIR\VELPATASVIR
     Indication: Hepatitis viral
     Dosage: OTHER QUANTITY : 400/100MG;?FREQUENCY : DAILY;?
     Route: 048
     Dates: start: 20250522, end: 20250801

REACTIONS (2)
  - Therapy cessation [None]
  - Suicide attempt [None]

NARRATIVE: CASE EVENT DATE: 20250801
